FAERS Safety Report 6201447-3 (Version None)
Quarter: 2009Q2

REPORT INFORMATION
  Report Type: 
  Country: None (occurrence: None)
  Receive Date: 20090526
  Receipt Date: 20090514
  Transmission Date: 20091009
  Serious: Yes (Hospitalization)
  Sender: FDA-Public Use
  Company Number: US-ROCHE-627885

PATIENT
  Sex: Male

DRUGS (2)
  1. PEG-INTERFERON A-2A (RO 25-8310) [Suspect]
     Indication: HEPATITIS C
     Dosage: TREATMENT SUSPENDED IN WEEK 39; PFS
     Route: 065
     Dates: start: 20080713, end: 20090411
  2. RIBAVIRIN [Suspect]
     Indication: HEPATITIS C
     Dosage: TREATMENT SUSPENDED IN WEEK 39;FREQUENCY: EVERY DAY
     Route: 065
     Dates: start: 20080713, end: 20090411

REACTIONS (5)
  - AMMONIA INCREASED [None]
  - CONFUSIONAL STATE [None]
  - DISORIENTATION [None]
  - INSOMNIA [None]
  - MENTAL DISORDER [None]
